FAERS Safety Report 9044903 (Version 1)
Quarter: 2013Q1

REPORT INFORMATION
  Report Type: Report from Study
  Country: JP (occurrence: JP)
  Receive Date: 20130130
  Receipt Date: 20130130
  Transmission Date: 20140127
  Serious: Yes (Other)
  Sender: FDA-Public Use
  Company Number: JP-GLAXOSMITHKLINE-B0860261A

PATIENT
  Age: 52 None
  Sex: Male

DRUGS (11)
  1. HEPSERA [Suspect]
     Indication: HEPATIC CIRRHOSIS
     Dosage: 10MG PER DAY
     Route: 048
     Dates: start: 20041204, end: 20050210
  2. HEPSERA [Suspect]
     Indication: HEPATIC CIRRHOSIS
     Dosage: 10MG PER DAY
     Route: 048
     Dates: start: 20050214
  3. ZEFIX [Suspect]
     Indication: HEPATIC CIRRHOSIS
     Route: 048
     Dates: start: 20011217, end: 20050210
  4. ZEFIX [Suspect]
     Indication: HEPATIC CIRRHOSIS
     Route: 048
     Dates: start: 20050214
  5. LASIX [Concomitant]
     Route: 048
  6. ALDACTONE A [Concomitant]
     Route: 048
  7. TAKEPRON [Concomitant]
     Route: 048
  8. TENORMIN [Concomitant]
     Route: 048
  9. URSO [Concomitant]
     Indication: HEPATITIS B
     Dosage: 200MG THREE TIMES PER DAY
     Route: 048
     Dates: start: 20010126, end: 20020624
  10. NEO-MINOPHAGEN-C [Concomitant]
     Indication: HEPATITIS B
     Route: 042
  11. ADELAVIN [Concomitant]
     Indication: HEPATITIS B
     Dosage: 1IUAX PER DAY
     Route: 042

REACTIONS (3)
  - Renal impairment [Recovered/Resolved]
  - Blood urea increased [Recovered/Resolved]
  - Blood creatinine increased [Recovered/Resolved]
